FAERS Safety Report 7775302-1 (Version None)
Quarter: 2011Q3

REPORT INFORMATION
  Report Type: 
  Country: None (occurrence: None)
  Receive Date: 20110923
  Receipt Date: 20110922
  Transmission Date: 20111222
  Serious: Yes (Death, Life-Threatening, Hospitalization, Other)
  Sender: FDA-Public Use
  Company Number: FR-ABBOTT-11P-056-0856886-00

PATIENT
  Sex: Male
  Weight: 54 kg

DRUGS (5)
  1. NORVIR [Suspect]
     Indication: HIV INFECTION
     Route: 048
     Dates: end: 20100222
  2. NEXIUM [Suspect]
     Indication: GASTRODUODENAL ULCER
     Route: 048
     Dates: start: 20100127
  3. REYATAZ [Suspect]
     Indication: HIV INFECTION
     Dates: end: 20100209
  4. ISENTRESS [Suspect]
     Indication: HIV INFECTION
     Route: 048
     Dates: end: 20100222
  5. PREZISTA [Suspect]
     Indication: HIV INFECTION
     Route: 048
     Dates: start: 20100209, end: 20100222

REACTIONS (12)
  - GASTRODUODENAL ULCER [None]
  - JAUNDICE [None]
  - ALCOHOLISM [None]
  - HEPATITIS ALCOHOLIC [None]
  - SEPSIS [None]
  - HAEMODYNAMIC INSTABILITY [None]
  - HEPATIC FAILURE [None]
  - RESPIRATORY DISTRESS [None]
  - RESPIRATORY FAILURE [None]
  - LUNG DISORDER [None]
  - ASCITES [None]
  - MULTI-ORGAN FAILURE [None]
